FAERS Safety Report 15995349 (Version 2)
Quarter: 2019Q3

REPORT INFORMATION
  Report Type: Spontaneous
  Country: JP (occurrence: JP)
  Receive Date: 20190222
  Receipt Date: 20190729
  Transmission Date: 20191004
  Serious: Yes (Other)
  Sender: FDA-Public Use
  Company Number: JP-TEVA-2019-JP-1015912

PATIENT
  Age: 84 Year
  Sex: Male

DRUGS (1)
  1. FILGRASTIM BS INJ. 150 MCG SYRINGE [Suspect]
     Active Substance: FILGRASTIM
     Indication: PROSTATE CANCER
     Route: 065

REACTIONS (1)
  - Pulmonary haemorrhage [Unknown]
